FAERS Safety Report 7834625-8 (Version None)
Quarter: 2011Q4

REPORT INFORMATION
  Report Type: 
  Country: None (occurrence: None)
  Receive Date: 20111024
  Receipt Date: 20101117
  Transmission Date: 20120403
  Serious: No
  Sender: FDA-Public Use
  Company Number: US-BAUSCH-2010BL006586

PATIENT

DRUGS (1)
  1. NEOMYCIN AND POLYMYXIN B SULFATES AND HYDROCORT OTIC SUS USP [Suspect]
     Route: 047

REACTIONS (3)
  - WRONG DRUG ADMINISTERED [None]
  - DRUG DISPENSING ERROR [None]
  - CORNEAL SCAR [None]
